FAERS Safety Report 5500348-3 (Version None)
Quarter: 2007Q4

REPORT INFORMATION
  Report Type: 
  Country: None (occurrence: None)
  Receive Date: 20071029
  Receipt Date: 20071023
  Transmission Date: 20080405
  Serious: Yes (Life-Threatening)
  Sender: FDA-Public Use
  Company Number: ES-AVENTIS-200714997EU

PATIENT
  Age: 68 Year
  Sex: Male

DRUGS (12)
  1. CLEXANE [Suspect]
     Indication: DRUG USE FOR UNKNOWN INDICATION
     Route: 058
     Dates: start: 20070824
  2. CIPROFLOXACIN [Suspect]
     Indication: DRUG USE FOR UNKNOWN INDICATION
     Route: 042
     Dates: start: 20070819
  3. BISOPROLOL FUMARATE [Suspect]
     Indication: DRUG USE FOR UNKNOWN INDICATION
     Route: 048
     Dates: start: 20070823
  4. VENTOLIN [Suspect]
     Route: 055
     Dates: start: 20070824, end: 20070824
  5. ATROVENT [Suspect]
     Indication: DRUG USE FOR UNKNOWN INDICATION
     Route: 055
     Dates: start: 20070824
  6. RENITEC                            /00574901/ [Suspect]
     Indication: DRUG USE FOR UNKNOWN INDICATION
     Route: 048
     Dates: start: 20070819
  7. TERMALGIN [Concomitant]
     Route: 048
     Dates: start: 20070823
  8. FORTAM [Concomitant]
     Route: 042
     Dates: start: 20070819
  9. PRIMPERAN                          /00041901/ [Concomitant]
     Dates: start: 20070816
  10. OMEPRAZOLE [Concomitant]
     Route: 048
     Dates: start: 20070823
  11. FLUMIL (ACETYLCYSTEINE) [Concomitant]
     Route: 048
     Dates: start: 20070818
  12. LORAZEPAM [Concomitant]
     Route: 048
     Dates: start: 20070810

REACTIONS (2)
  - ATRIAL FIBRILLATION [None]
  - DRUG INTERACTION [None]
